FAERS Safety Report 11872864 (Version 2)
Quarter: 2016Q1

REPORT INFORMATION
  Report Type: Spontaneous
  Country: US (occurrence: US)
  Receive Date: 20151228
  Receipt Date: 20160201
  Transmission Date: 20160526
  Serious: No
  Sender: FDA-Public Use
  Company Number: US-PFIZER INC-2015448130

PATIENT
  Age: 51 Year
  Sex: Male

DRUGS (1)
  1. DILANTIN [Suspect]
     Active Substance: PHENYTOIN
     Dosage: 200 MG, DAILY (PER DAY)

REACTIONS (2)
  - Drug hypersensitivity [Unknown]
  - Toxicity to various agents [Unknown]
